FAERS Safety Report 15622746 (Version 1)
Quarter: 2018Q4

REPORT INFORMATION
  Report Type: Spontaneous
  Country: BR (occurrence: BR)
  Receive Date: 20181115
  Receipt Date: 20181115
  Transmission Date: 20190205
  Serious: Yes (Other)
  Sender: FDA-Public Use
  Company Number: BR-SA-2018SA302595

PATIENT
  Age: 14 Year
  Sex: Female
  Weight: 42 kg

DRUGS (6)
  1. CEFAZOLINE [CEFAZOLIN] [Concomitant]
     Indication: PROPHYLAXIS
     Dosage: 3 G
     Route: 042
     Dates: start: 20181025, end: 20181026
  2. SODIUM CHLORIDE. [Concomitant]
     Active Substance: SODIUM CHLORIDE
     Indication: INFUSION
     Dosage: 500 ML
     Route: 042
     Dates: start: 20181025, end: 20181026
  3. METAMIZOLE SODIUM [Concomitant]
     Active Substance: METAMIZOLE SODIUM
     Indication: PREMEDICATION
     Dosage: 1000 MG
     Route: 042
     Dates: start: 20181025, end: 20181025
  4. THYMOGLOBULINE [Suspect]
     Active Substance: LAPINE T-LYMPHOCYTE IMMUNE GLOBULIN
     Indication: IMMUNOSUPPRESSION
     Dosage: 225 MG, QD
     Route: 042
     Dates: start: 20181024, end: 20181025
  5. RANITIDINE. [Concomitant]
     Active Substance: RANITIDINE
     Indication: PROPHYLAXIS AGAINST GASTROINTESTINAL ULCER
     Dosage: 100 MG
     Route: 042
     Dates: start: 20181025
  6. HYDROCORTISONE. [Concomitant]
     Active Substance: HYDROCORTISONE
     Indication: PREMEDICATION
     Dosage: 300 MG
     Route: 042
     Dates: start: 20181025, end: 20181025

REACTIONS (4)
  - Hypotension [Recovered/Resolved]
  - Haematocrit decreased [Unknown]
  - Tachycardia [Recovered/Resolved]
  - Haemoglobin decreased [Unknown]

NARRATIVE: CASE EVENT DATE: 20181025
